FAERS Safety Report 11004684 (Version 2)
Quarter: 2015Q3

REPORT INFORMATION
  Report Type: Spontaneous
  Country: CA (occurrence: CA)
  Receive Date: 20150409
  Receipt Date: 20150828
  Transmission Date: 20151125
  Serious: Yes (Other)
  Sender: FDA-Public Use
  Company Number: CA-ABBVIE-15K-028-1373284-00

PATIENT
  Age: 43 Year
  Sex: Female

DRUGS (2)
  1. HUMIRA [Suspect]
     Active Substance: ADALIMUMAB
     Indication: RHEUMATOID ARTHRITIS
     Route: 058
  2. ACTEMRA [Suspect]
     Active Substance: TOCILIZUMAB
     Indication: RHEUMATOID ARTHRITIS
     Dosage: 990 UNKNOWN
     Route: 042
     Dates: start: 2012, end: 20140917

REACTIONS (5)
  - Peripheral swelling [Unknown]
  - Pain [Unknown]
  - Knee arthroplasty [Unknown]
  - Drug ineffective [Unknown]
  - Local swelling [Unknown]
